FAERS Safety Report 8364938-5 (Version None)
Quarter: 2012Q2

REPORT INFORMATION
  Report Type: 
  Country: None (occurrence: None)
  Receive Date: 20120516
  Receipt Date: 20120511
  Transmission Date: 20120825
  Serious: Yes (Death)
  Sender: FDA-Public Use
  Company Number: US-GLAXOSMITHKLINE-A0813837A

PATIENT
  Age: 56 Year
  Sex: Male
  Weight: 84.1 kg

DRUGS (4)
  1. LEVITRA [Concomitant]
  2. NORVASC [Concomitant]
  3. VIAGRA [Concomitant]
  4. AVANDIA [Suspect]
     Indication: DIABETES MELLITUS
     Dosage: 4MG PER DAY
     Route: 048
     Dates: start: 20030901, end: 20070701

REACTIONS (5)
  - SUDDEN CARDIAC DEATH [None]
  - CARDIAC FAILURE CONGESTIVE [None]
  - GENERAL PHYSICAL HEALTH DETERIORATION [None]
  - CORONARY ARTERY DISEASE [None]
  - ACUTE MYOCARDIAL INFARCTION [None]
